FAERS Safety Report 4871511-X (Version None)
Quarter: 2005Q4

REPORT INFORMATION
  Report Type: 
  Country: None (occurrence: None)
  Receive Date: 20051229
  Receipt Date: 20051212
  Transmission Date: 20060501
  Serious: No
  Sender: FDA-Public Use
  Company Number: USA0508106900

PATIENT
  Age: 81 Year
  Sex: Female

DRUGS (7)
  1. FORTEO [Suspect]
     Indication: OSTEOPOROSIS
     Dosage: 20 UG DAILY (1/D), SUBCUTANEOUS
     Route: 058
     Dates: start: 20050301
  2. FORTEO PEN (FORTEO PEN) PEN DISPOSABLE [Concomitant]
  3. PREVACID [Concomitant]
  4. AVAPRO [Concomitant]
  5. NORVASC [Concomitant]
  6. ASPIRIN [Concomitant]
  7. LOPRESSOR [Concomitant]

REACTIONS (3)
  - ARTHRALGIA [None]
  - PNEUMONIA [None]
  - TREMOR [None]
